FAERS Safety Report 21507688 (Version 1)
Quarter: 2022Q4

REPORT INFORMATION
  Report Type: Spontaneous
  Country: US (occurrence: US)
  Receive Date: 20221026
  Receipt Date: 20221026
  Transmission Date: 20230113
  Serious: No
  Sender: FDA-Public Use
  Company Number: US-PFIZER INC-2020277545

PATIENT
  Age: 47 Year
  Sex: Female

DRUGS (1)
  1. EUCRISA [Suspect]
     Active Substance: CRISABOROLE
     Indication: Dermatitis
     Dosage: 2X/DAY (APPLY TO AFFECTED AREAS TWICE A DAY)

REACTIONS (3)
  - Dyslexia [Unknown]
  - Off label use [Unknown]
  - Product use in unapproved indication [Unknown]
